FAERS Safety Report 10221516 (Version 11)
Quarter: 2019Q3

REPORT INFORMATION
  Report Type: Report from Study
  Country: US (occurrence: US)
  Receive Date: 20140606
  Receipt Date: 20190726
  Transmission Date: 20191004
  Serious: Yes (Hospitalization, Other)
  Sender: FDA-Public Use
  Company Number: US-SA-2014SA073398

PATIENT
  Age: 15 Year
  Sex: Male

DRUGS (6)
  1. AGALSIDASE BETA [Suspect]
     Active Substance: AGALSIDASE BETA
     Dosage: 60 MG,QOW
     Route: 042
     Dates: start: 20140730
  2. AGALSIDASE BETA [Suspect]
     Active Substance: AGALSIDASE BETA
     Dosage: 70 MG, QOW
     Route: 042
     Dates: start: 20150121
  3. AGALSIDASE BETA [Suspect]
     Active Substance: AGALSIDASE BETA
     Dosage: 60 MG,QOW
     Route: 042
     Dates: start: 20140421
  4. AGALSIDASE BETA [Suspect]
     Active Substance: AGALSIDASE BETA
     Dosage: 60 MG,QOW
     Route: 042
     Dates: start: 20140421
  5. AGALSIDASE BETA [Suspect]
     Active Substance: AGALSIDASE BETA
     Indication: FABRY^S DISEASE
     Dosage: 60 MG,QOW
     Route: 042
     Dates: start: 20130530
  6. AGALSIDASE BETA [Suspect]
     Active Substance: AGALSIDASE BETA
     Dosage: 60 MG,QOW
     Route: 042
     Dates: start: 20140730

REACTIONS (14)
  - Aortic disorder [Unknown]
  - Unevaluable event [Unknown]
  - Pharyngitis streptococcal [Unknown]
  - Paronychia [Not Recovered/Not Resolved]
  - Blood calcium decreased [Unknown]
  - Irritable bowel syndrome [Not Recovered/Not Resolved]
  - Lymphadenitis [Not Recovered/Not Resolved]
  - Weight decreased [Recovered/Resolved]
  - Vitamin D decreased [Unknown]
  - Viral infection [Unknown]
  - Blood bilirubin increased [Unknown]
  - Full blood count decreased [Unknown]
  - Crohn^s disease [Not Recovered/Not Resolved]
  - Abdominal discomfort [Not Recovered/Not Resolved]

NARRATIVE: CASE EVENT DATE: 2014
